FAERS Safety Report 17016268 (Version 1)
Quarter: 2019Q4

REPORT INFORMATION
  Report Type: Spontaneous
  Country: US (occurrence: US)
  Receive Date: 20191003
  Receipt Date: 20191003
  Transmission Date: 20200122
  Serious: Yes (Life-Threatening, Hospitalization)
  Sender: FDA-Public Use
  Company Number: None

PATIENT
  Age: 66 Year
  Sex: Male
  Weight: 48.99 kg

DRUGS (15)
  1. ALTEPLASE. [Concomitant]
     Active Substance: ALTEPLASE
  2. POTASSIUM CHLORIDE. [Concomitant]
     Active Substance: POTASSIUM CHLORIDE
  3. FANTANYL [Concomitant]
     Active Substance: FENTANYL
  4. GUAIPENEAIN [Concomitant]
  5. IPRATROPIUM-ALBUTEROL [Concomitant]
     Active Substance: ALBUTEROL\IPRATROPIUM
  6. OXYCODONE [Concomitant]
     Active Substance: OXYCODONE
  7. ALBUTEROL. [Concomitant]
     Active Substance: ALBUTEROL
  8. IODIXANOL. [Concomitant]
     Active Substance: IODIXANOL
  9. NIVOLUMAB [Suspect]
     Active Substance: NIVOLUMAB
     Indication: OESOPHAGEAL CARCINOMA
     Dosage: ?          OTHER FREQUENCY:EVERY 2 WEEKS;?
     Route: 042
     Dates: start: 20190509, end: 20190703
  10. DEXTROSE. [Concomitant]
     Active Substance: DEXTROSE
  11. MELATONIN [Concomitant]
     Active Substance: MELATONIN
  12. ONDANSETRON [Concomitant]
     Active Substance: ONDANSETRON
  13. GLUCAGON. [Concomitant]
     Active Substance: GLUCAGON
  14. RELATLIMAB [Suspect]
     Active Substance: RELATLIMAB
     Dosage: ?          OTHER FREQUENCY:EVERY 2 WKS;?
     Route: 042
     Dates: start: 20190509, end: 20190703
  15. POTASSIUM CHLORIDE IN WATER [Concomitant]

REACTIONS (8)
  - Tachypnoea [None]
  - Atrial fibrillation [None]
  - Hypotension [None]
  - Pleural effusion [None]
  - Pericardial effusion [None]
  - Hypoxia [None]
  - Tachycardia [None]
  - Pyrexia [None]

NARRATIVE: CASE EVENT DATE: 20190909
